FAERS Safety Report 17236799 (Version 1)
Quarter: 2020Q1

REPORT INFORMATION
  Report Type: Other
  Country: GB (occurrence: GB)
  Receive Date: 20200106
  Receipt Date: 20200106
  Transmission Date: 20200409
  Serious: Yes (Other)
  Sender: FDA-Public Use
  Company Number: GB-STRIDES ARCOLAB LIMITED-2020SP000117

PATIENT
  Age: 54 Year
  Sex: Female

DRUGS (17)
  1. OMEGA-3-ACID ETHYL ESTERS. [Interacting]
     Active Substance: OMEGA-3-ACID ETHYL ESTERS
     Indication: IMMUNE SYSTEM DISORDER
     Dosage: UNK
     Route: 065
     Dates: end: 20191102
  2. BIO-SELENIUM + ZINC [Interacting]
     Active Substance: DIETARY SUPPLEMENT
     Indication: IMMUNE SYSTEM DISORDER
     Dosage: UNK
     Route: 065
  3. COLECALCIFEROL [Interacting]
     Active Substance: CHOLECALCIFEROL
     Indication: IMMUNE SYSTEM DISORDER
     Dosage: UNK
     Route: 065
  4. VIVOMIXX [Interacting]
     Active Substance: DIETARY SUPPLEMENT\PROBIOTICS
     Indication: IRON DEFICIENCY ANAEMIA
     Dosage: UNK
     Route: 065
  5. VIVOMIXX [Interacting]
     Active Substance: DIETARY SUPPLEMENT\PROBIOTICS
     Indication: IMMUNE SYSTEM DISORDER
     Dosage: UNK
     Route: 065
     Dates: end: 20191102
  6. COLECALCIFEROL [Interacting]
     Active Substance: CHOLECALCIFEROL
     Indication: IRON DEFICIENCY ANAEMIA
     Dosage: UNK (STRENGTH: 2500 IU)
     Route: 065
     Dates: end: 20191102
  7. FUNGORIN [Interacting]
     Active Substance: TERBINAFINE HYDROCHLORIDE
     Indication: TINEA PEDIS
     Dosage: UNK (STRENGTH: 250 MG, TABLET)
     Route: 065
     Dates: start: 20191009
  8. OMEGA-3-ACID ETHYL ESTERS. [Suspect]
     Active Substance: OMEGA-3-ACID ETHYL ESTERS
     Indication: IRON DEFICIENCY ANAEMIA
     Route: 065
  9. VITAMIN C [Interacting]
     Active Substance: ASCORBIC ACID
     Indication: IRON DEFICIENCY ANAEMIA
     Dosage: UNK
     Route: 065
     Dates: end: 20191102
  10. IRON [Interacting]
     Active Substance: IRON
     Indication: IMMUNE SYSTEM DISORDER
     Dosage: UNK
     Route: 065
     Dates: end: 20191102
  11. MONOFER [Concomitant]
     Active Substance: IRON ISOMALTOSIDE 1000
     Indication: IRON DEFICIENCY ANAEMIA
  12. BIO-SELENIUM + ZINC [Interacting]
     Active Substance: DIETARY SUPPLEMENT
     Indication: IRON DEFICIENCY ANAEMIA
     Dosage: UNK
     Route: 065
     Dates: end: 20191102
  13. VITAMIN C [Interacting]
     Active Substance: ASCORBIC ACID
     Indication: IMMUNE SYSTEM DISORDER
     Dosage: UNK
     Route: 065
  14. CURCUMIN [Interacting]
     Active Substance: CURCUMIN
     Indication: IRON DEFICIENCY ANAEMIA
     Dosage: UNK
     Route: 065
  15. CURCUMIN [Interacting]
     Active Substance: CURCUMIN
     Indication: IMMUNE SYSTEM DISORDER
     Dosage: UNK (STRENGTH: 500 MG)
     Route: 065
     Dates: end: 20191102
  16. IRON [Interacting]
     Active Substance: IRON
     Indication: IRON DEFICIENCY ANAEMIA
  17. MONOFER [Concomitant]
     Active Substance: IRON ISOMALTOSIDE 1000
     Indication: IMMUNE SYSTEM DISORDER
     Dosage: 1 GRAM, UNKNOWN (2 TO 3 TIMES YEARLY)
     Route: 042

REACTIONS (5)
  - Syncope [Unknown]
  - Off label use [Unknown]
  - Fall [Unknown]
  - Drug interaction [Unknown]
  - Pruritus [Unknown]

NARRATIVE: CASE EVENT DATE: 2019
